FAERS Safety Report 21086312 (Version 2)
Quarter: 2022Q3

REPORT INFORMATION
  Report Type: Spontaneous
  Country: EG (occurrence: EG)
  Receive Date: 20220715
  Receipt Date: 20220726
  Transmission Date: 20221027
  Serious: Yes (Other)
  Sender: FDA-Public Use
  Company Number: EG-NOVOPROD-937226

PATIENT
  Age: 728 Month
  Sex: Female

DRUGS (11)
  1. NOVORAPID [Suspect]
     Active Substance: INSULIN ASPART
     Indication: Diabetes mellitus
     Dosage: 14 IU, TID (BEFORE MEALS), FROM 2-3 MONTHS AGO
     Route: 058
     Dates: start: 202204
  2. METFORMIN HYDROCHLORIDE\VILDAGLIPTIN [Concomitant]
     Active Substance: METFORMIN HYDROCHLORIDE\VILDAGLIPTIN
     Indication: Diabetes mellitus
     Dosage: 50/1000 1 TAB MORNING AND NIGHT (STARTED FROM 6-7 YEARS)
     Route: 048
  3. RAMIPRIL [Concomitant]
     Active Substance: RAMIPRIL
     Indication: Hypertension
     Dosage: 1 TAB AT MORNING (STARTED FROM 3 WEEKS)
     Route: 048
  4. FENOFIBRATE [Concomitant]
     Active Substance: FENOFIBRATE
     Indication: Dyslipidaemia
     Dosage: 1 TAB/DAY (STARTED FROM 3 YEARS AGO AND STOPPED FROM 1 MONTH AGO)
     Route: 048
  5. FOLIC ACID [Concomitant]
     Active Substance: FOLIC ACID
     Indication: Vitamin supplementation
     Dosage: 1 TAB/DAY (STARTED FROM 2 MONTHS AGO)
     Route: 048
  6. LIPOMEDIZEN [Concomitant]
     Indication: Dyslipidaemia
     Dosage: 1 TAB/DAY (STARTED FROM 2 WEEKS AGO)
     Route: 048
  7. VITAMIN B12 [Concomitant]
     Active Substance: CYANOCOBALAMIN
     Indication: Vitamin supplementation
     Dosage: 1 TAB/DAY (STARTED FROM 3 YEARS)
     Route: 048
  8. BLOKIUM [DICLOFENAC DIETHYLAMINE] [Concomitant]
     Indication: Hypertension
     Dosage: 1 TAB/DAY  (STARTED FROM 30 YEARS AGO AND STOPPED FROM 3 MONTHS AGO)
     Route: 048
  9. ROSUVASTATIN CALCIUM [Concomitant]
     Active Substance: ROSUVASTATIN CALCIUM
     Indication: Dyslipidaemia
     Dosage: 2 TAB/DAY (STARTED FROM 6 YEARS AGO)
     Route: 048
  10. TOUJEO [Concomitant]
     Active Substance: INSULIN GLARGINE
     Indication: Diabetes mellitus
     Dosage: 40 IU, QD, AT NIGHT (START FROM 2 YEARS AGO)
     Route: 058
  11. BENFOTIAMINE\CYANOCOBALAMIN\PYRIDOXINE HYDROCHLORIDE [Concomitant]
     Active Substance: BENFOTIAMINE\CYANOCOBALAMIN\PYRIDOXINE HYDROCHLORIDE
     Indication: Vitamin supplementation
     Dosage: 1 TABLET NOT REGULARLY (STARTED FROM 30 YEARS)
     Route: 048

REACTIONS (3)
  - Ligament sprain [Not Recovered/Not Resolved]
  - Upper limb fracture [Not Recovered/Not Resolved]
  - Fall [Unknown]

NARRATIVE: CASE EVENT DATE: 20220601
